FAERS Safety Report 10207969 (Version 1)
Quarter: 2014Q2

REPORT INFORMATION
  Report Type: Spontaneous
  Country: US (occurrence: None)
  Receive Date: 20140527
  Receipt Date: 20140527
  Transmission Date: 20141212
  Serious: No
  Sender: FDA-Public Use
  Company Number: None

PATIENT
  Age: 57 Year
  Sex: Male

DRUGS (5)
  1. AMOXICILLIN CLAVULANATE [Suspect]
     Indication: SINUSITIS
     Dates: start: 20130326, end: 20130409
  2. CETIRIZINE [Concomitant]
  3. HYDROCHLORATHIAZIDE [Concomitant]
  4. LOSARTAN [Concomitant]
  5. SIMVASTATIN [Concomitant]

REACTIONS (9)
  - Drug-induced liver injury [None]
  - Fatigue [None]
  - Pruritus [None]
  - Jaundice [None]
  - Aspartate aminotransferase increased [None]
  - Alanine aminotransferase increased [None]
  - Blood alkaline phosphatase increased [None]
  - Blood bilirubin increased [None]
  - Eosinophil percentage increased [None]
